FAERS Safety Report 23274492 (Version 1)
Quarter: 2023Q4

REPORT INFORMATION
  Report Type: Spontaneous
  Country: IT (occurrence: IT)
  Receive Date: 20231208
  Receipt Date: 20231208
  Transmission Date: 20240109
  Serious: Yes (Other)
  Sender: FDA-Public Use
  Company Number: IT-009507513-2312ITA002421

PATIENT
  Sex: Female

DRUGS (1)
  1. PEMBROLIZUMAB [Suspect]
     Active Substance: PEMBROLIZUMAB
     Indication: Cervix cancer metastatic
     Dosage: UNK

REACTIONS (4)
  - Pneumonia [Unknown]
  - Neutropenia [Unknown]
  - Urticaria [Unknown]
  - Pleural effusion [Unknown]
